FAERS Safety Report 21816146 (Version 1)
Quarter: 2023Q1

REPORT INFORMATION
  Report Type: Spontaneous
  Country: US (occurrence: None)
  Receive Date: 20230103
  Receipt Date: 20230103
  Transmission Date: 20230417
  Serious: Yes (Hospitalization, Other)
  Sender: FDA-Public Use
  Company Number: None

PATIENT
  Age: 62 Year
  Sex: Female
  Weight: 61.23 kg

DRUGS (1)
  1. EVENITY [Suspect]
     Active Substance: ROMOSOZUMAB-AQQG
     Indication: Osteoporosis
     Dosage: OTHER STRENGTH : 105MG/1.17ML X 2 M;?FREQUENCY : MONTHLY;?
     Route: 058
     Dates: start: 20220713

REACTIONS (5)
  - Cerebrovascular accident [None]
  - Facial paralysis [None]
  - Dysarthria [None]
  - Confusional state [None]
  - Headache [None]

NARRATIVE: CASE EVENT DATE: 20221228
